FAERS Safety Report 10029212 (Version 1)
Quarter: 2020Q3

REPORT INFORMATION
  Report Type: Report from Study
  Country: KR (occurrence: KR)
  Receive Date: 20140321
  Receipt Date: 20140321
  Transmission Date: 20201104
  Serious: Yes (Death, Hospitalization)
  Sender: FDA-Public Use
  Company Number: PHHY2014KR033284

PATIENT
  Age: 62 Year
  Sex: Female

DRUGS (67)
  1. AMARYL [Concomitant]
     Active Substance: GLIMEPIRIDE
     Indication: DIABETES MELLITUS
     Route: 048
  2. ULCERMIN//SUCRALFATE [Concomitant]
     Indication: DYSPEPSIA
     Dosage: 15 ML, UNK
     Route: 048
     Dates: start: 20130221
  3. MACPERAN [Concomitant]
     Dosage: 20 MG, UNK
     Route: 048
     Dates: start: 20130724
  4. COMBIFLEX                          /07403001/ [Concomitant]
     Indication: DECREASED APPETITE
     Dosage: 1 U, UNK
     Route: 042
     Dates: start: 20130430, end: 20130501
  5. SMOFKABIVEN [Concomitant]
     Active Substance: AMINO ACIDS\DEXTROSE\ELECTROLYTES NOS\SOYBEAN OIL
     Dosage: 1 U, UNK
     Route: 042
     Dates: start: 20130502, end: 20130508
  6. NEURONTIN [Concomitant]
     Active Substance: GABAPENTIN
     Indication: PERIPHERAL SENSORY NEUROPATHY
     Dosage: 300 MG, UNK
     Route: 048
     Dates: start: 20130625
  7. SYNACTHEN (TETRACOSACTIDE) [Concomitant]
     Active Substance: COSYNTROPIN HEXAACETATE
     Indication: ADRENAL INSUFFICIENCY
     Dosage: 250 UG, UNK
     Route: 042
     Dates: start: 20130603, end: 20130609
  8. CORTISOLU [Concomitant]
     Indication: ADRENAL INSUFFICIENCY
     Dosage: 200 MG, UNK
     Route: 042
     Dates: start: 20130601, end: 20130707
  9. HUMULIN R [Concomitant]
     Active Substance: INSULIN HUMAN
     Indication: HYPERGLYCAEMIA
     Dosage: 16 U, UNK
     Route: 058
     Dates: start: 20130716, end: 20130724
  10. MOTILIUM//DOMPERIDONE MALEATE [Concomitant]
     Indication: PROPHYLAXIS OF NAUSEA AND VOMITING
     Dosage: 10 MG, UNK
     Route: 048
     Dates: start: 20130221, end: 20130502
  11. NEXIUM I.V. [Concomitant]
     Active Substance: ESOMEPRAZOLE SODIUM
     Indication: GASTROOESOPHAGEAL REFLUX DISEASE
     Dosage: 40 MG, UNK
     Route: 048
     Dates: start: 20130517
  12. CIPROBAY (CIPROFLOXACIN) [Concomitant]
     Indication: CYSTITIS
     Dosage: 400 MG, UNK
     Route: 042
     Dates: start: 20130709, end: 20130724
  13. XANAX [Concomitant]
     Active Substance: ALPRAZOLAM
     Indication: ABDOMINAL PAIN
     Dosage: 0.05 OT, UNK
     Route: 048
     Dates: start: 20130709, end: 20130711
  14. LASIX [Concomitant]
     Active Substance: FUROSEMIDE
     Indication: OEDEMA PERIPHERAL
     Dosage: 20 MG, UNK
     Route: 048
     Dates: start: 20130721
  15. GASTER [Concomitant]
     Active Substance: FAMOTIDINE
     Indication: GASTROOESOPHAGEAL REFLUX DISEASE
     Dosage: 20 MG, UNK
     Route: 048
     Dates: start: 20130713, end: 20130716
  16. MUCOPECT [Concomitant]
     Indication: PRODUCTIVE COUGH
     Dosage: 1 DF, UNK
     Route: 048
     Dates: start: 20130726
  17. ONARTUZUMAB. [Suspect]
     Active Substance: ONARTUZUMAB
     Indication: GASTROOESOPHAGEAL CANCER
     Route: 042
     Dates: start: 20130312, end: 20130430
  18. DIABEX [Concomitant]
     Active Substance: METFORMIN HYDROCHLORIDE
     Indication: DIABETES MELLITUS
     Route: 048
  19. BACTROBAN//MUPIROCIN CALCIUM [Concomitant]
     Dosage: 10 U, UNK
     Route: 062
     Dates: start: 20130304, end: 20130315
  20. DEXAMETHASONE. [Concomitant]
     Active Substance: DEXAMETHASONE
     Indication: PROPHYLAXIS OF NAUSEA AND VOMITING
     Dosage: 10 MG, UNK
     Route: 042
     Dates: start: 20130312
  21. DUROGESIC [Concomitant]
     Active Substance: FENTANYL
     Indication: GASTROOESOPHAGEAL REFLUX DISEASE
     Dosage: 40 UG, UNK
     Route: 062
     Dates: start: 20130529
  22. XYZAL [Concomitant]
     Active Substance: LEVOCETIRIZINE DIHYDROCHLORIDE
     Indication: DEPRESSION
     Dosage: 5 MG, UNK
     Route: 048
     Dates: start: 20130719
  23. ALLEGRA [Concomitant]
     Active Substance: FEXOFENADINE HYDROCHLORIDE
     Indication: VAGINAL INFECTION
     Dosage: 120 MG, UNK
     Route: 048
     Dates: start: 20130718, end: 20130718
  24. ALBUMIN [Concomitant]
     Active Substance: ALBUMIN HUMAN
     Dosage: 100 ML, UNK
     Route: 042
     Dates: start: 20130811, end: 20130811
  25. FOLINIC ACID [Suspect]
     Active Substance: LEUCOVORIN
     Indication: GASTROOESOPHAGEAL CANCER
     Route: 042
     Dates: start: 20130312
  26. FOLINIC ACID [Suspect]
     Active Substance: LEUCOVORIN
     Dosage: 584 MG, UNK
     Dates: start: 20130430
  27. MACPERAN [Concomitant]
     Indication: NAUSEA
     Dosage: 80 MG, UNK
     Route: 042
     Dates: start: 20130430, end: 20130508
  28. SMOFKABIVEN [Concomitant]
     Active Substance: AMINO ACIDS\DEXTROSE\ELECTROLYTES NOS\SOYBEAN OIL
     Dosage: 1 U, UNK
     Route: 042
     Dates: start: 20130409, end: 20130628
  29. CLEXANE [Concomitant]
     Active Substance: ENOXAPARIN SODIUM
     Indication: PULMONARY EMBOLISM
     Dosage: 40 MG, UNK
     Route: 058
     Dates: start: 20130505, end: 20130506
  30. DUPHALAC                                /NET/ [Concomitant]
     Indication: CONSTIPATION
     Dosage: 15 ML, UNK
     Route: 048
     Dates: start: 20130627
  31. OXALIPLATIN. [Suspect]
     Active Substance: OXALIPLATIN
     Indication: GASTROOESOPHAGEAL CANCER
     Route: 042
     Dates: start: 20130312
  32. GALVUS [Concomitant]
     Active Substance: VILDAGLIPTIN
     Indication: DIABETES MELLITUS
     Dosage: 1 DF, UNK
     Route: 048
  33. ACTIQ [Concomitant]
     Active Substance: FENTANYL CITRATE
     Indication: ABDOMINAL PAIN
     Dosage: 200 UG, UNK
     Route: 048
     Dates: start: 20130222
  34. SODIUM BICARBONATE. [Concomitant]
     Active Substance: SODIUM BICARBONATE
     Dates: start: 20130312
  35. GANATON [Concomitant]
     Active Substance: ITOPRIDE
     Indication: DYSPEPSIA
     Dosage: 50 MG, UNK
     Route: 048
     Dates: start: 20131119
  36. 5?FLUOROURACIL [Suspect]
     Active Substance: FLUOROURACIL
     Dosage: 2774 MG, UNK
     Route: 041
     Dates: start: 20130430
  37. GALVUS [Concomitant]
     Active Substance: VILDAGLIPTIN
     Indication: HYPERGLYCAEMIA
     Dates: start: 20130327
  38. BONARING?A [Concomitant]
     Indication: DIZZINESS
     Dosage: 1 DF, UNK
     Route: 048
     Dates: start: 20130424
  39. BONARING?A [Concomitant]
     Dosage: 50 MG, UNK
     Route: 048
     Dates: start: 20130811, end: 20130819
  40. CORTISOLU [Concomitant]
     Dosage: 200 MG, UNK
     Route: 042
     Dates: start: 20130709, end: 20130716
  41. ATIVAN [Concomitant]
     Active Substance: LORAZEPAM
     Indication: DEPRESSION
     Dosage: 2 MG, UNK
     Route: 042
     Dates: start: 20131007
  42. NUTRIFLEX                          /07403401/ [Concomitant]
     Indication: DECREASED APPETITE
     Dosage: 1250 ML, UNK
     Route: 042
     Dates: start: 20130811, end: 20130811
  43. LANSTON [Concomitant]
     Indication: DYSPEPSIA
     Dosage: 30 MG, UNK
     Route: 048
     Dates: start: 20130224, end: 20130502
  44. LAMINAR G [Concomitant]
     Indication: DYSPEPSIA
     Dosage: 30 ML, UNK
     Route: 048
     Dates: start: 20130226
  45. ZOVIRAX [Concomitant]
     Active Substance: ACYCLOVIR
     Dosage: 10 U, UNK
     Route: 062
     Dates: start: 20130304, end: 20130315
  46. MOTILIUM//DOMPERIDONE MALEATE [Concomitant]
     Indication: PROPHYLAXIS OF NAUSEA AND VOMITING
  47. MEGACE [Concomitant]
     Active Substance: MEGESTROL ACETATE
     Indication: DECREASED APPETITE
     Dosage: 20 ML, UNK
     Route: 048
     Dates: start: 20130223
  48. ALOXI [Concomitant]
     Active Substance: PALONOSETRON HYDROCHLORIDE
     Indication: PROPHYLAXIS OF NAUSEA AND VOMITING
     Dosage: 0.25 MG, UNK
     Route: 042
     Dates: start: 20130312
  49. ALOXI [Concomitant]
     Active Substance: PALONOSETRON HYDROCHLORIDE
     Indication: PROPHYLAXIS OF NAUSEA AND VOMITING
  50. PANCRON//PANCREATIN [Concomitant]
     Indication: DYSPEPSIA
     Dosage: 1 DF, UNK
     Route: 048
     Dates: start: 20130311
  51. BONARING?A [Concomitant]
     Dosage: 1 DF, UNK
     Route: 048
     Dates: start: 20130430, end: 20130617
  52. SMOFKABIVEN [Concomitant]
     Active Substance: AMINO ACIDS\DEXTROSE\ELECTROLYTES NOS\SOYBEAN OIL
     Indication: DECREASED APPETITE
     Dosage: 1 DF, UNK
     Route: 067
     Dates: start: 20130502, end: 20130508
  53. XANAX [Concomitant]
     Active Substance: ALPRAZOLAM
     Dosage: 0.25 MG, UNK
     Route: 048
     Dates: start: 20130711
  54. PENIRAMIN [Concomitant]
     Dosage: 2 MG, UNK
     Route: 048
     Dates: start: 20131007, end: 20131010
  55. OXALIPLATIN. [Suspect]
     Active Substance: OXALIPLATIN
     Dosage: 124 MG, UNK
     Route: 042
     Dates: start: 20130330
  56. 5?FLUOROURACIL [Suspect]
     Active Substance: FLUOROURACIL
     Indication: GASTROOESOPHAGEAL CANCER
     Dosage: 584 MG, UNK
     Route: 040
     Dates: start: 20130326
  57. DESOWEN [Concomitant]
     Active Substance: DESONIDE
     Dosage: 120 U, UNK
     Route: 062
     Dates: start: 20130225, end: 20130315
  58. DEXAMETHASONE. [Concomitant]
     Active Substance: DEXAMETHASONE
     Indication: PROPHYLAXIS OF NAUSEA AND VOMITING
  59. DIAMICRON [Concomitant]
     Active Substance: GLICLAZIDE
     Indication: HYPERGLYCAEMIA
     Dosage: 60 MG, UNK
     Route: 048
     Dates: start: 20130328
  60. PANTOLOC//PANTOPRAZOLE SODIUM SESQUIHYDRATE [Concomitant]
     Indication: GASTROOESOPHAGEAL REFLUX DISEASE
     Dosage: 40 MG, UNK
     Route: 042
     Dates: start: 20130430, end: 20130508
  61. PANTOLOC//PANTOPRAZOLE SODIUM SESQUIHYDRATE [Concomitant]
     Dosage: 40 MG, UNK
     Route: 042
     Dates: start: 20130811, end: 20130811
  62. MAGNESIUM OXIDE. [Concomitant]
     Active Substance: MAGNESIUM OXIDE
     Indication: CONSTIPATION
     Dosage: 1 DF, UNK
     Route: 048
     Dates: start: 20130625
  63. HYDROCORTISONE. [Concomitant]
     Active Substance: HYDROCORTISONE
     Indication: ADRENAL INSUFFICIENCY
     Dosage: 10 MG, UNK
     Route: 048
     Dates: start: 20130604
  64. MORPHINE HYDROCHLORIDE [Concomitant]
     Active Substance: MORPHINE HYDROCHLORIDE
     Indication: ABDOMINAL PAIN
     Dosage: 1 DF, UNK
     Route: 042
     Dates: start: 20130709, end: 20130724
  65. TRAVOCORT [Concomitant]
     Indication: VAGINAL INFECTION
     Dosage: 15 G, UNK
     Route: 067
     Dates: start: 20130712, end: 20130721
  66. POTASSIUM PHOSPHATE MONOBASIC [Concomitant]
     Active Substance: POTASSIUM PHOSPHATE, MONOBASIC
     Indication: HYPOPHOSPHATAEMIA
     Dosage: 20 ML, UNK
     Route: 042
     Dates: start: 20130711, end: 20130712
  67. GASTER [Concomitant]
     Active Substance: FAMOTIDINE
     Dosage: 20 MG, UNK
     Route: 042
     Dates: start: 20130811, end: 20130811

REACTIONS (2)
  - Metastatic gastric cancer [Fatal]
  - Asthenia [Recovering/Resolving]
